FAERS Safety Report 10605893 (Version 1)
Quarter: 2014Q4

REPORT INFORMATION
  Report Type: Spontaneous
  Country: DE (occurrence: DE)
  Receive Date: 20141125
  Receipt Date: 20141125
  Transmission Date: 20150529
  Serious: Yes (Other)
  Sender: FDA-Public Use
  Company Number: DE-AUROBINDO-AUR-APL-2014-12233

PATIENT
  Age: 23 Year
  Sex: Male
  Weight: 107.9 kg

DRUGS (12)
  1. QUILONUM                           /00033702/ [Suspect]
     Active Substance: LITHIUM CARBONATE
     Dosage: 1250 MG, ONCE A DAY
     Route: 048
     Dates: start: 20121231, end: 20140317
  2. QUILONUM                           /00033702/ [Suspect]
     Active Substance: LITHIUM CARBONATE
     Dosage: 675 MG, ONCE A DAY
     Route: 048
     Dates: start: 20140326, end: 20140401
  3. VALPROAT [Suspect]
     Active Substance: VALPROATE SODIUM
     Dosage: 1000 MG, ONCE A DAY
     Route: 048
     Dates: start: 20120116, end: 20120202
  4. QUETIAPINE [Suspect]
     Active Substance: QUETIAPINE
     Indication: PRODUCT USED FOR UNKNOWN INDICATION
     Dosage: 500-200MG/D
     Route: 048
     Dates: start: 20121119, end: 20140319
  5. QUILONUM                           /00033702/ [Suspect]
     Active Substance: LITHIUM CARBONATE
     Dosage: 900 MG, ONCE A DAY
     Route: 048
     Dates: start: 20140318, end: 20140325
  6. QUILONUM                           /00033702/ [Suspect]
     Active Substance: LITHIUM CARBONATE
     Dosage: 225 MG, ONCE A DAY
     Route: 048
     Dates: start: 20140408, end: 20140422
  7. VALPROAT [Suspect]
     Active Substance: VALPROATE SODIUM
     Indication: PRODUCT USED FOR UNKNOWN INDICATION
     Dosage: 500 MG, ONCE A DAY
     Route: 048
     Dates: start: 20120113, end: 20120115
  8. VALPROAT [Suspect]
     Active Substance: VALPROATE SODIUM
     Dosage: 2000 MG, ONCE A DAY
     Route: 048
     Dates: start: 20121122
  9. ELONTRIL [Concomitant]
     Active Substance: BUPROPION HYDROCHLORIDE
     Indication: PRODUCT USED FOR UNKNOWN INDICATION
     Dosage: 300 MG, ONCE A DAY
     Route: 048
     Dates: start: 20121120
  10. QUILONUM                           /00033702/ [Suspect]
     Active Substance: LITHIUM CARBONATE
     Indication: BIPOLAR DISORDER
     Dosage: 900 MG, ONCE A DAY
     Route: 048
     Dates: start: 20121219, end: 20121230
  11. QUILONUM                           /00033702/ [Suspect]
     Active Substance: LITHIUM CARBONATE
     Dosage: 500 MG, ONCE A DAY
     Route: 048
     Dates: start: 20140402, end: 20140407
  12. VALPROAT [Suspect]
     Active Substance: VALPROATE SODIUM
     Dosage: 1200-1600MG PER DAY
     Route: 048
     Dates: start: 20120203, end: 20121121

REACTIONS (2)
  - Tremor [Recovered/Resolved]
  - Weight increased [Recovering/Resolving]

NARRATIVE: CASE EVENT DATE: 20130115
